FAERS Safety Report 18153008 (Version 9)
Quarter: 2023Q1

REPORT INFORMATION
  Report Type: Report from Study
  Country: US (occurrence: US)
  Receive Date: 20200814
  Receipt Date: 20230201
  Transmission Date: 20230418
  Serious: Yes (Death, Life-Threatening, Hospitalization, Other)
  Sender: FDA-Public Use
  Company Number: US-GILEAD-2020-0486994

PATIENT
  Age: 43 Year
  Sex: Male
  Weight: 83 kg

DRUGS (69)
  1. BREXUCABTAGENE AUTOLEUCEL [Suspect]
     Active Substance: BREXUCABTAGENE AUTOLEUCEL
     Indication: Mantle cell lymphoma
     Dosage: 68 (UNITS NOT PROVIDED)
     Route: 042
     Dates: start: 20200722, end: 20200722
  2. CYCLOPHOSPHAMIDE [Suspect]
     Active Substance: CYCLOPHOSPHAMIDE
     Indication: Bone marrow conditioning regimen
     Dosage: 500 (UNITS NOT PROVIDED)
     Route: 042
     Dates: start: 20200717, end: 20200719
  3. FLUDARABINE [Suspect]
     Active Substance: FLUDARABINE PHOSPHATE
     Indication: Bone marrow conditioning regimen
     Dosage: 30 (UNITS NOT PROVIDED)
     Route: 042
     Dates: start: 20200717, end: 20200719
  4. ACTEMRA [Concomitant]
     Active Substance: TOCILIZUMAB
     Dosage: 800,MG,ONCE
     Route: 042
     Dates: start: 20200724, end: 20200724
  5. ACTEMRA [Concomitant]
     Active Substance: TOCILIZUMAB
     Dosage: 800,MG,ONCE
     Route: 042
     Dates: start: 20200726, end: 20200726
  6. ACTEMRA [Concomitant]
     Active Substance: TOCILIZUMAB
     Dosage: 800,MG,ONCE
     Route: 042
     Dates: start: 20200726, end: 20200726
  7. DEXAMETHASONE [Concomitant]
     Active Substance: DEXAMETHASONE
     Dosage: 10,MG,ONCE
     Route: 042
     Dates: start: 20200720, end: 20200720
  8. KEPPRA [Concomitant]
     Active Substance: LEVETIRACETAM
     Dosage: 500,MG,TWICE DAILY
     Route: 048
     Dates: start: 20200721, end: 20200726
  9. KEPPRA [Concomitant]
     Active Substance: LEVETIRACETAM
     Dosage: DOSE ADJUSTED TO UNKNOWN DOSE
     Dates: start: 20200726
  10. KEPPRA [Concomitant]
     Active Substance: LEVETIRACETAM
     Dosage: DOSE ADJUSTED TO UNKNOWN DOSEUNK
     Dates: start: 20200727
  11. KEPPRA [Concomitant]
     Active Substance: LEVETIRACETAM
     Dosage: 1000 MG/100 ML NS IVPB 1000,MG,ONCE
     Route: 042
     Dates: start: 20200726, end: 20200726
  12. KEPPRA [Concomitant]
     Active Substance: LEVETIRACETAM
     Dosage: 1500 MG/100 ML NS IVPB 1500,MG,TWICE DAILY
     Route: 042
     Dates: start: 20200726, end: 20200726
  13. KEPPRA [Concomitant]
     Active Substance: LEVETIRACETAM
     Dosage: 2000 MG IN NS 250 ML IV 2000,MG,ONCE
     Route: 042
     Dates: start: 20200727, end: 20200727
  14. KEPPRA [Concomitant]
     Active Substance: LEVETIRACETAM
     Dosage: 2000 MG IN NS 250 ML, 2000,MG,TWICE DAILY
     Route: 042
     Dates: start: 20200727, end: 20200727
  15. KEPPRA [Concomitant]
     Active Substance: LEVETIRACETAM
     Dosage: 1000 MG/100 ML NS, 1000,MG,TWICE DAILY
     Route: 042
     Dates: start: 20200727, end: 20200727
  16. KEPPRA [Concomitant]
     Active Substance: LEVETIRACETAM
     Dosage: 1000 MG/100 ML NS IVPB 1000, MG, TWICE DAILY
     Route: 042
     Dates: start: 20200801, end: 20200806
  17. KEPPRA [Concomitant]
     Active Substance: LEVETIRACETAM
     Dosage: 1000,MG,TWICE DAILY
     Route: 042
     Dates: start: 20200806, end: 20200811
  18. LORAZEPAM [Concomitant]
     Active Substance: LORAZEPAM
     Dosage: 1,MG,AS NECESSARY
     Route: 048
     Dates: start: 20200618, end: 20200720
  19. ATOVAQUONE [Concomitant]
     Active Substance: ATOVAQUONE
     Dosage: 1500,UG,DAILY
     Route: 048
     Dates: start: 20200716, end: 20200720
  20. ALLOPURINOL [Concomitant]
     Active Substance: ALLOPURINOL
     Indication: Prophylaxis
     Dosage: 300,MG,DAILY
     Route: 048
     Dates: start: 20200721, end: 20200728
  21. ALLOPURINOL [Concomitant]
     Active Substance: ALLOPURINOL
     Dosage: UNK
     Dates: start: 20200806
  22. ALLOPURINOL [Concomitant]
     Active Substance: ALLOPURINOL
     Dosage: 300,MG,DAILY
     Route: 048
     Dates: start: 20200717, end: 20200728
  23. EMEND (FOSAPREPITANT DIMEGLUMINE) [Concomitant]
     Active Substance: FOSAPREPITANT DIMEGLUMINE
     Dosage: 150,MG,ONCE
     Route: 042
     Dates: start: 20200717, end: 20200717
  24. NORCO [Concomitant]
     Active Substance: ACETAMINOPHEN\HYDROCODONE BITARTRATE
     Dosage: 5-325,MG,ONCE
     Route: 048
     Dates: start: 20200718, end: 20200718
  25. ONDANSETRON [Concomitant]
     Active Substance: ONDANSETRON
     Dosage: 8,MG,AS NECESSARY
     Route: 048
     Dates: start: 20200719, end: 20200720
  26. ONDANSETRON [Concomitant]
     Active Substance: ONDANSETRON
     Dosage: 16,MG,ONCE
     Route: 042
     Dates: start: 20200717, end: 20200718
  27. ONDANSETRON [Concomitant]
     Active Substance: ONDANSETRON
     Dosage: 16,MG,ONCE
     Route: 042
     Dates: start: 20200719, end: 20200719
  28. ONDANSETRON [Concomitant]
     Active Substance: ONDANSETRON
     Dosage: 16 MG IN D5W 50 ML IVPB; 200,OTHER,DAILY
     Route: 042
     Dates: start: 20200721, end: 20200723
  29. ONDANSETRON [Concomitant]
     Active Substance: ONDANSETRON
     Dosage: 8,MG,AS NECESSARY
     Route: 042
     Dates: start: 20200724, end: 20200726
  30. POTASSIUM CHLORIDE [Concomitant]
     Active Substance: POTASSIUM CHLORIDE
     Dosage: 16,MG,ONCE
     Route: 042
     Dates: start: 20200719, end: 20200719
  31. POTASSIUM CHLORIDE [Concomitant]
     Active Substance: POTASSIUM CHLORIDE
     Dosage: 20 MEQ/L 20-125,OTHER,CONTINUOUS
     Route: 042
     Dates: start: 20200721, end: 20200726
  32. POTASSIUM CHLORIDE [Concomitant]
     Active Substance: POTASSIUM CHLORIDE
     Dosage: 10 MEQ/100 ML WATER IVPB (PREMIX) 10,OTHER,AS NECESSARY
     Route: 042
     Dates: start: 20200722, end: 20200811
  33. POTASSIUM CHLORIDE [Concomitant]
     Active Substance: POTASSIUM CHLORIDE
     Dosage: 20 MEQ/50 ML WATER IVPB PREMIX 20,OTHER,AS NECESSARY
     Route: 042
     Dates: start: 20200722, end: 20200811
  34. POTASSIUM CHLORIDE [Concomitant]
     Active Substance: POTASSIUM CHLORIDE
     Dosage: 20 MEQ/L
     Route: 042
     Dates: start: 20200723, end: 20200726
  35. POTASSIUM CHLORIDE [Concomitant]
     Active Substance: POTASSIUM CHLORIDE
     Dosage: 10 MEQ/100 ML WATER IVPB 10,OTHER,AS NECESSARY
     Route: 042
     Dates: start: 20200723, end: 20200811
  36. POTASSIUM CHLORIDE [Concomitant]
     Active Substance: POTASSIUM CHLORIDE
     Dosage: 20 MEQ/50 ML WATER IVPB 20,OTHER,AS NECESSARY
     Route: 042
     Dates: start: 20200723, end: 20200811
  37. POTASSIUM CHLORIDE [Concomitant]
     Active Substance: POTASSIUM CHLORIDE
     Dosage: 20 MEQ/50 ML WATER IVPB 20,OTHER,OTHER
     Route: 042
     Dates: start: 20200728, end: 20200728
  38. POTASSIUM CHLORIDE [Concomitant]
     Active Substance: POTASSIUM CHLORIDE
     Dosage: 40,OTHER,ONCE
     Route: 050
     Dates: start: 20200802, end: 20200802
  39. POTASSIUM CHLORIDE [Concomitant]
     Active Substance: POTASSIUM CHLORIDE
     Dosage: 10-60,OTHER,ONCE
     Route: 050
     Dates: start: 20200803, end: 20200803
  40. POTASSIUM CHLORIDE [Concomitant]
     Active Substance: POTASSIUM CHLORIDE
     Dosage: 40,OTHER,ONCE
     Route: 050
     Dates: start: 20200804, end: 20200804
  41. POTASSIUM CHLORIDE [Concomitant]
     Active Substance: POTASSIUM CHLORIDE
     Dosage: 10-60,OTHER,AS NECESSARY
     Route: 050
     Dates: start: 20200804, end: 20200808
  42. POTASSIUM CHLORIDE [Concomitant]
     Active Substance: POTASSIUM CHLORIDE
     Dosage: 40,OTHER,ONCE
     Route: 050
     Dates: start: 20200806, end: 20200806
  43. ACYCLOVIR [Concomitant]
     Active Substance: ACYCLOVIR
     Dosage: 800,MG,TWICE DAILY
     Route: 048
     Dates: start: 20200716, end: 20200726
  44. BUSPAR [Concomitant]
     Active Substance: BUSPIRONE HYDROCHLORIDE
     Dosage: 10,MG,TWICE DAILY
     Route: 048
     Dates: start: 20200721, end: 20200727
  45. BUSPAR [Concomitant]
     Active Substance: BUSPIRONE HYDROCHLORIDE
     Dosage: 10,MG,TWICE DAILY
     Route: 050
     Dates: start: 20200727, end: 20200811
  46. SODIUM CHLORIDE [Concomitant]
     Active Substance: SODIUM CHLORIDE
     Dosage: 20-125,OTHER,CONTINUOUS
     Route: 042
     Dates: start: 20200721, end: 20200726
  47. SODIUM CHLORIDE [Concomitant]
     Active Substance: SODIUM CHLORIDE
     Dosage: 20-125,OTHER,CONTINUOUS
     Route: 042
     Dates: start: 20200723, end: 20200726
  48. TYLENOL [Concomitant]
     Active Substance: ACETAMINOPHEN
     Dosage: 650,MG,ONCE
     Route: 048
     Dates: start: 20200722, end: 20200722
  49. TYLENOL [Concomitant]
     Active Substance: ACETAMINOPHEN
     Dosage: 650,MG,AS NECESSARY
     Route: 048
     Dates: start: 20200723, end: 20200726
  50. TYLENOL [Concomitant]
     Active Substance: ACETAMINOPHEN
     Dosage: 1000,MG,ONCE
     Route: 048
     Dates: start: 20200725, end: 20200725
  51. DIPHENHYDRAMINE [Concomitant]
     Active Substance: DIPHENHYDRAMINE
     Dosage: 12.5,MG,ONCE
     Route: 042
     Dates: start: 20200722, end: 20200722
  52. CELEXA [Concomitant]
     Active Substance: CITALOPRAM HYDROBROMIDE
     Dosage: 20,MG,DAILY
     Route: 048
     Dates: start: 20200722, end: 20200727
  53. CELEXA [Concomitant]
     Active Substance: CITALOPRAM HYDROBROMIDE
     Dosage: 20,MG,DAILY
     Route: 048
     Dates: start: 20200723, end: 20200727
  54. CELEXA [Concomitant]
     Active Substance: CITALOPRAM HYDROBROMIDE
     Dosage: 20,MG,DAILY
     Route: 050
     Dates: start: 20200728, end: 20200811
  55. PEPCID [Concomitant]
     Active Substance: FAMOTIDINE
     Dosage: 20,MG,DAILY
     Route: 048
     Dates: start: 20200722, end: 20200726
  56. CLARITIN [Concomitant]
     Active Substance: LORATADINE
     Dosage: 10,MG,DAILY
     Route: 048
     Dates: start: 20200722, end: 20200727
  57. CLARITIN [Concomitant]
     Active Substance: LORATADINE
     Dosage: 10,MG,DAILY
     Dates: start: 20200728, end: 20200811
  58. ATIVAN [Concomitant]
     Active Substance: LORAZEPAM
     Dosage: 0.5,MG,AS NECESSARY
     Route: 042
     Dates: start: 20200722, end: 20200726
  59. ATIVAN [Concomitant]
     Active Substance: LORAZEPAM
     Dosage: 0.5,MG,ONCE
     Route: 048
     Dates: start: 20200723, end: 20200723
  60. ATIVAN [Concomitant]
     Active Substance: LORAZEPAM
     Dosage: 0.5,MG,ONCE
     Route: 042
     Dates: start: 20200725, end: 20200725
  61. ATIVAN [Concomitant]
     Active Substance: LORAZEPAM
     Dosage: 1,MG,ONCE
     Route: 042
     Dates: start: 20200726, end: 20200726
  62. ATIVAN [Concomitant]
     Active Substance: LORAZEPAM
     Dosage: 2,MG,ONCE
     Route: 042
     Dates: start: 20200731, end: 20200731
  63. ATIVAN [Concomitant]
     Active Substance: LORAZEPAM
     Dosage: 2,MG,TWICE DAILY
     Route: 042
     Dates: start: 20200726, end: 20200726
  64. PROCHLORPERAZINE EDISYLATE [Concomitant]
     Active Substance: PROCHLORPERAZINE EDISYLATE
     Dosage: 5,MG,FOUR TIMES DAILY
     Route: 042
     Dates: start: 20200723, end: 20200811
  65. FAMOTIDINE [Concomitant]
     Active Substance: FAMOTIDINE
     Dosage: 20,MG,DAILY
     Route: 048
     Dates: start: 20200723, end: 20200726
  66. FAMOTIDINE [Concomitant]
     Active Substance: FAMOTIDINE
     Dosage: 20,MG,TWICE DAILY
     Route: 042
     Dates: start: 20200726, end: 20200811
  67. NEUPOGEN [Concomitant]
     Active Substance: FILGRASTIM
     Dosage: 600,UG,DAILY
     Route: 058
     Dates: start: 20200723, end: 20200728
  68. ROXICODONE [Concomitant]
     Active Substance: OXYCODONE HYDROCHLORIDE
     Dosage: 10,MG,AS NECESSARY
     Route: 048
     Dates: start: 20200725, end: 20200726
  69. ROXICODONE [Concomitant]
     Active Substance: OXYCODONE HYDROCHLORIDE
     Dosage: 5,MG,TWICE DAILY
     Route: 048
     Dates: start: 20200725, end: 20200725

REACTIONS (7)
  - Multiple organ dysfunction syndrome [Fatal]
  - Encephalopathy [Recovered/Resolved]
  - Cardiac arrest [Recovered/Resolved]
  - Seizure [Recovered/Resolved]
  - Seizure [Recovered/Resolved]
  - Candida infection [Recovered/Resolved]
  - Acute kidney injury [Recovered/Resolved]

NARRATIVE: CASE EVENT DATE: 20200726
